FAERS Safety Report 25188732 (Version 1)
Quarter: 2025Q2

REPORT INFORMATION
  Report Type: Spontaneous
  Country: US (occurrence: US)
  Receive Date: 20250411
  Receipt Date: 20250411
  Transmission Date: 20250716
  Serious: No
  Sender: MADRIGAL PHARMACEUTICALS
  Company Number: US-MADRIGAL PHARMACEUTICALS, INC-2025REZ0044

PATIENT

DRUGS (38)
  1. REZDIFFRA [Suspect]
     Active Substance: RESMETIROM
     Indication: Metabolic dysfunction-associated steatohepatitis
     Dosage: 100 MILLIGRAM, QD
     Route: 048
     Dates: start: 20241021
  2. ASPIRIN [Concomitant]
     Active Substance: ASPIRIN
  3. VITAMIN B COMPLEX [Concomitant]
     Active Substance: CYANOCOBALAMIN\DEXPANTHENOL\NIACINAMIDE\PYRIDOXINE HYDROCHLORIDE\RIBOFLAVIN 5^-PHOSPHATE SODIUM\THIA
  4. CARTIA XT [Concomitant]
     Active Substance: DILTIAZEM HYDROCHLORIDE
  5. CELEBREX [Concomitant]
     Active Substance: CELECOXIB
  6. DIAZEPAM [Concomitant]
     Active Substance: DIAZEPAM
  7. DICLOFENAC [Concomitant]
     Active Substance: DICLOFENAC
     Route: 061
  8. EMGALITY [Concomitant]
     Active Substance: GALCANEZUMAB-GNLM
     Route: 058
  9. EPIPEN [Concomitant]
     Active Substance: EPINEPHRINE
  10. FERROUS SULFATE [Concomitant]
     Active Substance: FERROUS SULFATE
  11. FETZIMA [Concomitant]
     Active Substance: LEVOMILNACIPRAN HYDROCHLORIDE
     Dosage: 120 MILLIGRAM, Q24H
  12. FLONASE [Concomitant]
     Active Substance: FLUTICASONE PROPIONATE
  13. LASIX [Concomitant]
     Active Substance: FUROSEMIDE
  14. GLUCOTROL [Concomitant]
     Active Substance: GLIPIZIDE
     Dosage: 10 MILLIGRAM, Q24H
  15. HYDROCORTISONE [Concomitant]
     Active Substance: HYDROCORTISONE
     Route: 061
  16. Semglee [Concomitant]
     Route: 058
  17. LATUDA [Concomitant]
     Active Substance: LURASIDONE HYDROCHLORIDE
  18. LIDODERM [Concomitant]
     Active Substance: LIDOCAINE
     Route: 061
  19. MAGNESIUM OXIDE [Concomitant]
     Active Substance: MAGNESIUM OXIDE
  20. GLUCOPHAGE XR [Concomitant]
     Active Substance: METFORMIN HYDROCHLORIDE
     Dosage: 500 MILLIGRAM, Q24H
  21. ROBAXIN [Concomitant]
     Active Substance: METHOCARBAMOL
  22. LOPRESSOR [Concomitant]
     Active Substance: METOPROLOL TARTRATE
  23. NURTEC ODT [Concomitant]
     Active Substance: RIMEGEPANT SULFATE
     Indication: Migraine
  24. PRILOSEC [Concomitant]
     Active Substance: OMEPRAZOLE MAGNESIUM
  25. KLOR-CON M20 [Concomitant]
     Active Substance: POTASSIUM CHLORIDE
  26. PRAVACHOL [Concomitant]
     Active Substance: PRAVASTATIN SODIUM
  27. LYRICA [Concomitant]
     Active Substance: PREGABALIN
  28. RANEXA [Concomitant]
     Active Substance: RANOLAZINE
     Dosage: 1000 MILLIGRAM, Q12H
  29. SYMBICORT [Concomitant]
     Active Substance: BUDESONIDE\FORMOTEROL FUMARATE DIHYDRATE
  30. DIOVAN [Concomitant]
     Active Substance: VALSARTAN
  31. VENTOLIN HFA [Concomitant]
     Active Substance: ALBUTEROL SULFATE
  32. BOTOX [Concomitant]
     Active Substance: ONABOTULINUMTOXINA
     Indication: Migraine
  33. VALIUM [Concomitant]
     Active Substance: DIAZEPAM
  34. LANTUS [Concomitant]
     Active Substance: INSULIN GLARGINE
  35. METFORMIN HYDROCHLORIDE [Concomitant]
     Active Substance: METFORMIN HYDROCHLORIDE
  36. METHOCARBAMOL [Concomitant]
     Active Substance: METHOCARBAMOL
  37. POTASSIUM CHLORIDE [Concomitant]
     Active Substance: POTASSIUM CHLORIDE
  38. VALSARTAN [Concomitant]
     Active Substance: VALSARTAN

REACTIONS (1)
  - Headache [Not Recovered/Not Resolved]

NARRATIVE: CASE EVENT DATE: 20241030
